FAERS Safety Report 15712678 (Version 1)
Quarter: 2018Q4

REPORT INFORMATION
  Report Type: Spontaneous
  Country: US (occurrence: US)
  Receive Date: 20181212
  Receipt Date: 20181212
  Transmission Date: 20190205
  Serious: No
  Sender: FDA-Public Use
  Company Number: US-TEVA-2018-US-983577

PATIENT
  Sex: Female
  Weight: 68 kg

DRUGS (1)
  1. AMLODIPINE, VALSARTAN, AND HYDROCHLOROTHIAZIDE TABLETS TEVA [Suspect]
     Active Substance: AMLODIPINE BESYLATE\HYDROCHLOROTHIAZIDE\VALSARTAN
     Indication: HYPERTENSION
     Dosage: AMLODIPINE 5 MG+ HYDROCHLOROTHIAZIDE12.5MG+ VALSARTAN 160 MG
     Route: 065
     Dates: end: 201805

REACTIONS (6)
  - Gastric dilatation [Unknown]
  - Weight increased [Unknown]
  - Abdominal pain upper [Unknown]
  - Abdominal distension [Unknown]
  - Dizziness [Unknown]
  - Recalled product administered [Unknown]
